FAERS Safety Report 8614993-X (Version None)
Quarter: 2012Q3

REPORT INFORMATION
  Report Type: 
  Country: None (occurrence: None)
  Receive Date: 20120823
  Receipt Date: 20120813
  Transmission Date: 20120928
  Serious: Yes (Other)
  Sender: FDA-Public Use
  Company Number: US-PFIZER INC-2012196568

PATIENT
  Sex: Female

DRUGS (3)
  1. ESTROGEN/PROGESTERONE [Interacting]
     Indication: MENSTRUAL DISORDER
  2. ESTROGEN/PROGESTERONE [Interacting]
     Indication: PREMENSTRUAL SYNDROME
     Dosage: UNK
  3. PRISTIQ [Suspect]
     Dosage: 100 MG, UNK
     Dates: start: 20120101

REACTIONS (8)
  - MENSTRUAL DISORDER [None]
  - MENTAL DISORDER [None]
  - FIBROMYALGIA [None]
  - DEPRESSION [None]
  - DRUG INTERACTION [None]
  - AFFECT LABILITY [None]
  - EMOTIONAL DISORDER [None]
  - DRUG INEFFECTIVE [None]
